FAERS Safety Report 10019529 (Version 4)
Quarter: 2014Q4

REPORT INFORMATION
  Report Type: Spontaneous
  Country: US (occurrence: US)
  Receive Date: 20140318
  Receipt Date: 20141126
  Transmission Date: 20150528
  Serious: Yes (Death)
  Sender: FDA-Public Use
  Company Number: US-NAPPMUNDI-USA-2014-0112031

PATIENT
  Age: 2 Year
  Sex: Male

DRUGS (1)
  1. OXYCONTIN [Suspect]
     Active Substance: OXYCODONE HYDROCHLORIDE
     Indication: PRODUCT USED FOR UNKNOWN INDICATION
     Dosage: UNK
     Route: 048
     Dates: start: 20140219

REACTIONS (3)
  - Overdose [Fatal]
  - Victim of homicide [Fatal]
  - Accidental exposure to product [Fatal]

NARRATIVE: CASE EVENT DATE: 20140219
